FAERS Safety Report 7041032-7 (Version None)
Quarter: 2010Q4

REPORT INFORMATION
  Report Type: 
  Country: None (occurrence: None)
  Receive Date: 20101013
  Receipt Date: 20100930
  Transmission Date: 20110411
  Serious: Yes (Hospitalization)
  Sender: FDA-Public Use
  Company Number: AU-JNJFOC-20101000701

PATIENT
  Sex: Male
  Weight: 110 kg

DRUGS (15)
  1. BLINDED; GOLIMUMA [Suspect]
     Indication: RHEUMATOID ARTHRITIS
     Route: 042
  2. BLINDED; GOLIMUMA [Suspect]
     Route: 042
  3. PLACEBO [Suspect]
     Indication: RHEUMATOID ARTHRITIS
     Route: 042
  4. PLACEBO [Suspect]
     Route: 042
  5. METHOTREXATE [Suspect]
     Indication: RHEUMATOID ARTHRITIS
  6. FEXOFENADINE HCL [Concomitant]
     Indication: PROPHYLAXIS
     Route: 048
  7. PARACETAMOL [Concomitant]
     Indication: PROPHYLAXIS
     Route: 048
  8. FOLIC ACID [Concomitant]
     Indication: PROPHYLAXIS
     Route: 048
  9. ALLOPURINOL [Concomitant]
     Indication: HYPERURICAEMIA
     Route: 048
  10. COLCHICINE [Concomitant]
     Indication: HYPERURICAEMIA
     Route: 048
  11. PROBENECID [Concomitant]
     Indication: HYPERURICAEMIA
     Route: 048
  12. ESOMEPRAZOLE [Concomitant]
     Indication: GASTROOESOPHAGEAL REFLUX DISEASE
     Route: 048
  13. ACETAMINOPHEN W/ CODEINE [Concomitant]
     Indication: RHEUMATOID ARTHRITIS
     Route: 048
  14. ALBUTEROL SULFATE AUTOHALER [Concomitant]
     Indication: OBSTRUCTIVE AIRWAYS DISORDER
     Route: 055
  15. PREDNISONE [Concomitant]

REACTIONS (3)
  - LOWER RESPIRATORY TRACT INFECTION [None]
  - NEPHROLITHIASIS [None]
  - UPPER RESPIRATORY TRACT INFECTION [None]
